FAERS Safety Report 13486854 (Version 3)
Quarter: 2017Q2

REPORT INFORMATION
  Report Type: Spontaneous
  Country: US (occurrence: US)
  Receive Date: 20170426
  Receipt Date: 20170606
  Transmission Date: 20170830
  Serious: Yes (Other)
  Sender: FDA-Public Use
  Company Number: US-BRISTOL-MYERS SQUIBB COMPANY-BMS-2017-033539

PATIENT

DRUGS (1)
  1. ABILIFY [Suspect]
     Active Substance: ARIPIPRAZOLE
     Indication: PRODUCT USED FOR UNKNOWN INDICATION
     Dosage: UNK
     Route: 065
     Dates: start: 201008, end: 201402

REACTIONS (5)
  - Tardive dyskinesia [Unknown]
  - Cognitive disorder [Unknown]
  - Pain [Unknown]
  - Brain injury [Unknown]
  - Anxiety [Unknown]

NARRATIVE: CASE EVENT DATE: 201311
